FAERS Safety Report 24701233 (Version 1)
Quarter: 2024Q4

REPORT INFORMATION
  Report Type: Spontaneous
  Country: IE (occurrence: IE)
  Receive Date: 20241205
  Receipt Date: 20241205
  Transmission Date: 20250114
  Serious: Yes (Death)
  Sender: MYLAN
  Company Number: IE-MYLANLABS-2024M1097239

PATIENT
  Sex: Male

DRUGS (1)
  1. CLOZARIL [Suspect]
     Active Substance: CLOZAPINE
     Indication: Psychiatric symptom
     Dosage: 37.5 MILLIGRAM, QD (DAILY)
     Route: 048
     Dates: start: 20220914

REACTIONS (2)
  - Dementia [Fatal]
  - Pneumonia [Fatal]
